FAERS Safety Report 10672451 (Version 1)
Quarter: 2014Q4

REPORT INFORMATION
  Report Type: Spontaneous
  Country: US (occurrence: None)
  Receive Date: 20141222
  Receipt Date: 20141222
  Transmission Date: 20150529
  Serious: No
  Sender: FDA-Public Use
  Company Number: None

PATIENT
  Age: 34 Year
  Sex: Male
  Weight: 120.2 kg

DRUGS (1)
  1. GENERIC FOR ADDERALL [Suspect]
     Active Substance: AMPHETAMINE ASPARTATE\AMPHETAMINE SULFATE\DEXTROAMPHETAMINE SACCHARATE\DEXTROAMPHETAMINE SULFATE
     Indication: ATTENTION DEFICIT/HYPERACTIVITY DISORDER
     Dosage: 2 PILLS
     Route: 048
     Dates: start: 20141120, end: 20141217

REACTIONS (6)
  - Feeling abnormal [None]
  - Product quality issue [None]
  - Feeling jittery [None]
  - Product substitution issue [None]
  - Drug effect decreased [None]
  - Peripheral coldness [None]

NARRATIVE: CASE EVENT DATE: 20141217
